FAERS Safety Report 17825532 (Version 1)
Quarter: 2020Q2

REPORT INFORMATION
  Report Type: Spontaneous
  Country: CA (occurrence: CA)
  Receive Date: 20200526
  Receipt Date: 20200526
  Transmission Date: 20200714
  Serious: Yes (Life-Threatening, Hospitalization)
  Sender: FDA-Public Use
  Company Number: CA-TEVA-2020-CA-1239131

PATIENT
  Age: 74 Year
  Sex: Male

DRUGS (15)
  1. RABEPRAZOLE [Concomitant]
     Active Substance: RABEPRAZOLE
  2. TRAMADOL HYDROCHLORIDE. [Concomitant]
     Active Substance: TRAMADOL HYDROCHLORIDE
  3. ZOPICLONE [Concomitant]
     Active Substance: ZOPICLONE
  4. PREDNISONE. [Concomitant]
     Active Substance: PREDNISONE
  5. DEXAMETHASONE. [Concomitant]
     Active Substance: DEXAMETHASONE
  6. DIPHENHYDRAMINE. [Concomitant]
     Active Substance: DIPHENHYDRAMINE
  7. GOSERELIN [Concomitant]
     Active Substance: GOSERELIN
  8. LYRICA [Concomitant]
     Active Substance: PREGABALIN
  9. FLOMAX [Concomitant]
     Active Substance: TAMSULOSIN HYDROCHLORIDE
  10. TYLENOL [Concomitant]
     Active Substance: ACETAMINOPHEN
  11. VOLTAREN [Concomitant]
     Active Substance: DICLOFENAC SODIUM
  12. ATIVAN [Concomitant]
     Active Substance: LORAZEPAM
  13. LIPITOR [Concomitant]
     Active Substance: ATORVASTATIN CALCIUM
  14. DOCETAXEL. [Suspect]
     Active Substance: DOCETAXEL
     Indication: PROSTATE CANCER
     Route: 041
  15. WELLBUTRIN [Concomitant]
     Active Substance: BUPROPION HYDROCHLORIDE

REACTIONS (1)
  - Pulmonary embolism [Unknown]
